FAERS Safety Report 6255210-8 (Version None)
Quarter: 2009Q3

REPORT INFORMATION
  Report Type: 
  Country: None (occurrence: None)
  Receive Date: 20090702
  Receipt Date: 20090330
  Transmission Date: 20100115
  Serious: No
  Sender: FDA-Public Use
  Company Number: US-BAYER-200917517NA

PATIENT
  Sex: Female

DRUGS (13)
  1. MAGNEVIST [Suspect]
     Indication: NUCLEAR MAGNETIC RESONANCE IMAGING
     Dosage: TOTAL DAILY DOSE: 15.4 ML  UNIT DOSE: 50 ML
     Route: 042
     Dates: start: 20090330, end: 20090330
  2. ZOCOR [Concomitant]
  3. PREDNISONE [Concomitant]
  4. DITROPAN [Concomitant]
  5. PROZAC [Concomitant]
  6. PROVIGIL [Concomitant]
  7. AMBIEN [Concomitant]
  8. BONIVA [Concomitant]
  9. BACLOFEN [Concomitant]
  10. CLONAZEPAM [Concomitant]
  11. ATIVAN [Concomitant]
  12. PREDNISONE [Concomitant]
     Indication: PREMEDICATION
     Dosage: TOTAL DAILY DOSE: 20 MG
     Dates: start: 20090328, end: 20090330
  13. BENADRYL [Concomitant]
     Indication: PREMEDICATION
     Dosage: AS USED: 50 MG
     Route: 030
     Dates: start: 20090330, end: 20090330

REACTIONS (2)
  - PRURITUS [None]
  - RASH [None]
